FAERS Safety Report 5416433-0 (Version None)
Quarter: 2007Q3

REPORT INFORMATION
  Report Type: 
  Country: None (occurrence: None)
  Receive Date: 20070816
  Receipt Date: 20070810
  Transmission Date: 20080115
  Serious: Yes (Hospitalization)
  Sender: FDA-Public Use
  Company Number: US-JNJFOC-20060504665

PATIENT
  Sex: Female
  Weight: 68.04 kg

DRUGS (2)
  1. ORTHO EVRA [Suspect]
     Indication: CONTRACEPTION
     Route: 062
  2. NUVARING [Suspect]
     Indication: CONTRACEPTION

REACTIONS (2)
  - CEREBRAL INFARCTION [None]
  - CONVULSION [None]
